FAERS Safety Report 16931466 (Version 2)
Quarter: 2021Q4

REPORT INFORMATION
  Report Type: Report from Study
  Country: AT (occurrence: AT)
  Receive Date: 20191017
  Receipt Date: 20211012
  Transmission Date: 20220304
  Serious: Yes (Hospitalization)
  Sender: FDA-Public Use
  Company Number: PHHO2019AT007069

PATIENT
  Age: 76 Year
  Sex: Female
  Weight: 42 kg

DRUGS (7)
  1. INVESTIGATIONAL PRODUCT [Suspect]
     Active Substance: INVESTIGATIONAL PRODUCT
     Indication: Sjogren^s syndrome
     Dosage: CODE NOT BROKEN
     Route: 058
     Dates: start: 20180109, end: 20181212
  2. PLACEBO [Suspect]
     Active Substance: UNSPECIFIED INGREDIENT
     Indication: Sjogren^s syndrome
     Dosage: CODE NOT BROKEN
     Route: 058
     Dates: start: 20180109, end: 20181212
  3. VAY-736 [Suspect]
     Active Substance: VAY-736
     Indication: Sjogren^s syndrome
     Dosage: CODE NOT BROKEN
     Route: 058
     Dates: start: 20180109, end: 20181212
  4. EUTHYROX [Concomitant]
     Active Substance: LEVOTHYROXINE SODIUM
     Indication: Autoimmune thyroid disorder
     Dosage: 100 MG
     Route: 048
     Dates: start: 19970628
  5. MYCOPHENOLATE MOFETIL [Concomitant]
     Active Substance: MYCOPHENOLATE MOFETIL
     Indication: Sjogren^s syndrome
     Dosage: 500 MG, BID
     Route: 048
     Dates: start: 20190502, end: 20190626
  6. NIFEDIPINE [Concomitant]
     Active Substance: NIFEDIPINE
     Indication: Product used for unknown indication
     Dosage: UNK
     Route: 065
     Dates: end: 20190627
  7. JORIX [Concomitant]
     Indication: Supplementation therapy
     Dosage: UNK
     Route: 065
     Dates: start: 20100628

REACTIONS (2)
  - Anaemia [Recovering/Resolving]
  - Weight decreased [Recovering/Resolving]

NARRATIVE: CASE EVENT DATE: 20190626
